FAERS Safety Report 8904463 (Version 2)
Quarter: 2013Q1

REPORT INFORMATION
  Report Type: Spontaneous
  Country: US (occurrence: US)
  Receive Date: 20121112
  Receipt Date: 20130311
  Transmission Date: 20140127
  Serious: No
  Sender: FDA-Public Use
  Company Number: US-009507513-1210USA009985

PATIENT
  Age: 27 None
  Sex: Female
  Weight: 153.74 kg

DRUGS (1)
  1. IMPLANON [Suspect]
     Indication: CONTRACEPTION
     Dosage: 1 DF, UNK
     Route: 059
     Dates: start: 2008

REACTIONS (6)
  - Implant site fibrosis [Unknown]
  - Device dislocation [Unknown]
  - Device difficult to use [Not Recovered/Not Resolved]
  - Complication of device insertion [Unknown]
  - Incorrect drug administration duration [Unknown]
  - Device breakage [Unknown]
